FAERS Safety Report 7512271-3 (Version None)
Quarter: 2011Q2

REPORT INFORMATION
  Report Type: 
  Country: None (occurrence: None)
  Receive Date: 20110531
  Receipt Date: 20110519
  Transmission Date: 20111010
  Serious: Yes (Hospitalization)
  Sender: FDA-Public Use
  Company Number: PHHY2011IT42593

PATIENT
  Sex: Male

DRUGS (8)
  1. ALFAFLOR [Concomitant]
     Dosage: UNK UKN, UNK
  2. EFFEXOR [Concomitant]
     Dosage: 75 MG, UNK
     Route: 048
     Dates: start: 20100101
  3. CLONAZEPAM [Concomitant]
     Dosage: 30 DF, UNK
     Route: 048
     Dates: start: 20100101
  4. FERROGRAD C [Concomitant]
     Dosage: 1 DF, UNK
     Route: 048
  5. TEGRETOL [Suspect]
     Dosage: 4 DF, DAILY
     Route: 048
  6. TEGRETOL [Suspect]
     Dosage: 25 DF, POSOLOGICAL UNITS
     Route: 048
     Dates: start: 20110517, end: 20110517
  7. SIMVASTATIN [Suspect]
     Dosage: 600 MG, UNK
     Route: 048
     Dates: start: 20110517, end: 20110517
  8. RANITIDINE [Concomitant]
     Dosage: 300 MG, UNK
     Route: 048

REACTIONS (6)
  - ELECTROCARDIOGRAM ST SEGMENT ELEVATION [None]
  - INTENTIONAL OVERDOSE [None]
  - ELECTROCARDIOGRAM QT SHORTENED [None]
  - SINUS BRADYCARDIA [None]
  - ANTICONVULSANT DRUG LEVEL INCREASED [None]
  - SELF INJURIOUS BEHAVIOUR [None]
